FAERS Safety Report 9649402 (Version 1)
Quarter: 2013Q4

REPORT INFORMATION
  Report Type: Spontaneous
  Country: IT (occurrence: IT)
  Receive Date: 20131028
  Receipt Date: 20131028
  Transmission Date: 20140711
  Serious: Yes (Disabling, Other)
  Sender: FDA-Public Use
  Company Number: PHHY2013IT117290

PATIENT
  Age: 42 Year
  Sex: Female

DRUGS (12)
  1. ACICLOVIR [Suspect]
     Dates: start: 200808
  2. LAMIVUDINE [Suspect]
     Dates: start: 200808
  3. METHYLPREDNISOLONE [Suspect]
     Dosage: 40 MG, BID
     Route: 042
  4. PREDNISONE [Suspect]
     Dosage: 2.5-5 MG PER DAY
     Route: 048
  5. PREDNISONE [Suspect]
     Dosage: 12.5-25 MG FOR SHORT PERIODS
     Route: 048
  6. EMTRICITABINE [Suspect]
  7. ABACAVIR [Suspect]
  8. ATAZANAVIR [Suspect]
  9. TENOFOVIR [Suspect]
  10. GANCICLOVIR [Suspect]
  11. VALGANCICLOVIR [Suspect]
     Dates: start: 200808
  12. IMMUNOGLOBULINS [Concomitant]
     Route: 042

REACTIONS (7)
  - Immune reconstitution inflammatory syndrome [Unknown]
  - Susac^s syndrome [Unknown]
  - Neurological symptom [Unknown]
  - Central nervous system lesion [Unknown]
  - Cognitive disorder [Unknown]
  - Blindness [Unknown]
  - Deafness [Unknown]
